FAERS Safety Report 5818212-9 (Version None)
Quarter: 2008Q3

REPORT INFORMATION
  Report Type: 
  Country: None (occurrence: None)
  Receive Date: 20080716
  Receipt Date: 20080703
  Transmission Date: 20090109
  Serious: Yes (Disabling)
  Sender: FDA-Public Use
  Company Number: 2008-180124-NL

PATIENT
  Age: 80 Year
  Sex: Female

DRUGS (2)
  1. MIRTAZAPINE [Suspect]
     Indication: DEPRESSION
     Dosage: 15 MG ORAL
     Route: 048
     Dates: start: 20080129, end: 20080208
  2. MIRTAZAPINE [Suspect]
     Indication: STRESS
     Dosage: 15 MG ORAL
     Route: 048
     Dates: start: 20080129, end: 20080208

REACTIONS (3)
  - ATRIAL FIBRILLATION [None]
  - CARDIAC FAILURE [None]
  - DYSPNOEA EXERTIONAL [None]
